FAERS Safety Report 24577968 (Version 1)
Quarter: 2024Q4

REPORT INFORMATION
  Report Type: Spontaneous
  Country: US (occurrence: US)
  Receive Date: 20241104
  Receipt Date: 20241104
  Transmission Date: 20250114
  Serious: No
  Sender: TEIKOKU
  Company Number: US-TPU-TPU-2024-00548

PATIENT
  Sex: Female

DRUGS (4)
  1. LIDOCAINE PATCH [Suspect]
     Active Substance: LIDOCAINE
     Indication: Back pain
     Dates: start: 2011
  2. OXYCODONE [Concomitant]
     Active Substance: OXYCODONE
  3. TYLENOL [Concomitant]
     Active Substance: ACETAMINOPHEN
  4. IBUPROFEN [Concomitant]
     Active Substance: IBUPROFEN

REACTIONS (2)
  - Drug ineffective for unapproved indication [Unknown]
  - Incorrect dose administered [Unknown]
